FAERS Safety Report 18771359 (Version 3)
Quarter: 2022Q1

REPORT INFORMATION
  Report Type: Spontaneous
  Country: JP (occurrence: JP)
  Receive Date: 20210122
  Receipt Date: 20220201
  Transmission Date: 20220423
  Serious: Yes (Hospitalization, Other)
  Sender: FDA-Public Use
  Company Number: JP-ALXN-A202100396

PATIENT
  Age: 7 Decade
  Sex: Female

DRUGS (1)
  1. ULTOMIRIS [Suspect]
     Active Substance: RAVULIZUMAB-CWVZ
     Indication: Paroxysmal nocturnal haemoglobinuria
     Dosage: 3000 MG, Q8W
     Route: 042
     Dates: start: 202006, end: 20220126

REACTIONS (1)
  - Metastatic carcinoma of the bladder [Not Recovered/Not Resolved]

NARRATIVE: CASE EVENT DATE: 20210112
